FAERS Safety Report 17695348 (Version 4)
Quarter: 2020Q2

REPORT INFORMATION
  Report Type: Report from Study
  Country: CA (occurrence: CA)
  Receive Date: 20200422
  Receipt Date: 20200630
  Transmission Date: 20200714
  Serious: Yes (Other)
  Sender: FDA-Public Use
  Company Number: CA-BEH-2020116249

PATIENT
  Age: 74 Year
  Sex: Male
  Weight: 80 kg

DRUGS (2)
  1. HIZENTRA [Suspect]
     Active Substance: HUMAN IMMUNOGLOBULIN G
     Dosage: 25 GRAM, TOT
     Route: 058
     Dates: start: 20200413
  2. HIZENTRA [Suspect]
     Active Substance: HUMAN IMMUNOGLOBULIN G
     Indication: CHRONIC INFLAMMATORY DEMYELINATING POLYRADICULONEUROPATHY
     Dosage: 50 GRAM, QW
     Route: 058
     Dates: start: 20200317, end: 2020

REACTIONS (4)
  - Diarrhoea [Unknown]
  - Therapy change [Unknown]
  - Rectal haemorrhage [Unknown]
  - No adverse event [Unknown]

NARRATIVE: CASE EVENT DATE: 2020
